FAERS Safety Report 7592216-0 (Version None)
Quarter: 2011Q3

REPORT INFORMATION
  Report Type: 
  Country: None (occurrence: None)
  Receive Date: 20110706
  Receipt Date: 20110624
  Transmission Date: 20111222
  Serious: Yes (Hospitalization, Other)
  Sender: FDA-Public Use
  Company Number: US-ELI_LILLY_AND_COMPANY-US201104006693

PATIENT
  Sex: Female

DRUGS (32)
  1. ROBAXIN [Concomitant]
     Dosage: 750 MG, PRN
     Dates: start: 20110519
  2. FISH OIL [Concomitant]
     Dosage: 1000 MG, QD
     Dates: start: 20100918
  3. FIBER [Concomitant]
     Dosage: 1 DF, BID
     Dates: start: 20090126
  4. FORTEO [Suspect]
     Dosage: 20 UG, QD
  5. PERCOCET [Concomitant]
     Dosage: 1 DF, PRN
     Dates: start: 20110514
  6. ZITHROMAX [Concomitant]
     Dosage: 250 MG, 3/W
     Dates: start: 20110506
  7. ALBUTEROL SULFATE AUTOHALER [Concomitant]
     Dosage: 1 DF, QID
     Dates: start: 20110419
  8. VENTOLIN                                /SCH/ [Concomitant]
     Dosage: 90 UG, PRN
     Dates: start: 20100318
  9. LIDODERM [Concomitant]
     Dosage: UNK, QD
     Dates: start: 20091208
  10. NORVASC [Concomitant]
     Dosage: 5 MG, BID
     Dates: start: 20110616
  11. MECLIZINE [Concomitant]
     Dosage: 12.5 MG, QID
     Dates: start: 20110616
  12. ACAPELLA [Concomitant]
     Dosage: UNK
     Dates: start: 20110420
  13. AMBIEN [Concomitant]
     Dosage: 5 MG, PRN
     Dates: start: 20110401
  14. ASPIRIN [Concomitant]
     Dosage: 81 MG, QD
     Dates: start: 20080329
  15. REGLAN [Concomitant]
     Dosage: 5.50 MG, QD
     Dates: start: 20110616
  16. CARDIZEM [Concomitant]
     Dosage: 180 MG, QD
     Dates: start: 20110426
  17. CALCIUM +D                         /00188401/ [Concomitant]
     Dosage: 1 DF, QD
     Dates: start: 20110420
  18. FERROUS SULFATE TAB [Concomitant]
     Dosage: 324 MG, QD
     Dates: start: 20101026
  19. PULMICORT [Concomitant]
     Dosage: 1 DF, PRN
     Dates: start: 20090812
  20. VITAMIN D [Concomitant]
     Dosage: 1000 IU, QD
     Dates: start: 20090126
  21. NEXIUM [Concomitant]
     Dosage: 40 MG, BID
     Dates: start: 20110616
  22. AGGRENOX [Concomitant]
     Dosage: 1 DF, BID
     Dates: start: 20110616
  23. ALBUTEROL SULFATE AUTOHALER [Concomitant]
     Dosage: 1 DF, TID
     Dates: start: 20110323
  24. MULTI-VITAMIN [Concomitant]
     Dosage: 1 DF, QD
     Dates: start: 20101229
  25. NITROGLYCERIN [Concomitant]
     Dosage: 0.4 MG, PRN
     Route: 060
     Dates: start: 20101216
  26. FORTEO [Suspect]
     Indication: OSTEOPOROSIS
     Dosage: 20 UG, QD
     Route: 065
     Dates: start: 20100701
  27. KEPPRA [Concomitant]
     Dosage: 500 MG, BID
     Dates: start: 20110525
  28. LORTAB [Concomitant]
     Dosage: 1 DF, PRN
     Dates: start: 20110401
  29. LORAZEPAM [Concomitant]
     Dosage: 0.5 MG, PRN
     Dates: start: 20110401
  30. PREDNISONE [Concomitant]
     Dosage: 5 MG, QD
     Dates: start: 20110323
  31. TOBRAMYCIN [Concomitant]
     Dosage: 300 MG, BID
     Dates: start: 20110224
  32. OXYBUTYNIN CHLORIDE [Concomitant]
     Dosage: 5 MG, PRN
     Dates: start: 20101217

REACTIONS (3)
  - PNEUMONIA STAPHYLOCOCCAL [None]
  - CEREBROVASCULAR ACCIDENT [None]
  - LUNG INFECTION PSEUDOMONAL [None]
